FAERS Safety Report 14290763 (Version 3)
Quarter: 2018Q4

REPORT INFORMATION
  Report Type: Spontaneous
  Country: DE (occurrence: DE)
  Receive Date: 20171215
  Receipt Date: 20181006
  Transmission Date: 20190204
  Serious: Yes (Other)
  Sender: FDA-Public Use
  Company Number: DE-AUROBINDO-AUR-APL-2017-45419

PATIENT
  Age: 59 Year
  Sex: Female

DRUGS (18)
  1. AMISULPRIDE [Suspect]
     Active Substance: AMISULPRIDE
     Indication: HASHIMOTO^S ENCEPHALOPATHY
  2. CITALOPRAM [Suspect]
     Active Substance: CITALOPRAM HYDROBROMIDE
     Indication: HASHIMOTO^S ENCEPHALOPATHY
  3. ARIPIPRAZOLE. [Suspect]
     Active Substance: ARIPIPRAZOLE
     Indication: NERVOUS SYSTEM DISORDER
     Dosage: UP TO 15 MG/DAY
     Route: 065
     Dates: start: 2016, end: 201609
  4. QUETIAPINE. [Suspect]
     Active Substance: QUETIAPINE
     Indication: NERVOUS SYSTEM DISORDER
     Dosage: UP TO 200 MG/DAY
     Route: 065
     Dates: start: 2016, end: 201609
  5. QUETIAPINE. [Suspect]
     Active Substance: QUETIAPINE
     Indication: HASHIMOTO^S ENCEPHALOPATHY
  6. VENLAFAXINE [Suspect]
     Active Substance: VENLAFAXINE HYDROCHLORIDE
     Indication: DEPRESSION
     Dosage: UP TO 150 MG/DAY
     Route: 065
     Dates: start: 2016, end: 201609
  7. LORAZEPAM. [Suspect]
     Active Substance: LORAZEPAM
     Indication: ANXIETY
     Dosage: UPTO 5 MG/DAY
     Route: 065
     Dates: start: 2016, end: 201609
  8. VENLAFAXINE [Suspect]
     Active Substance: VENLAFAXINE HYDROCHLORIDE
     Indication: HASHIMOTO^S ENCEPHALOPATHY
  9. RISPERIDONE. [Suspect]
     Active Substance: RISPERIDONE
     Indication: NERVOUS SYSTEM DISORDER
     Dosage: UP TO 4MG/DAY
     Route: 065
     Dates: start: 2016, end: 201609
  10. FLUPENTIXOL [Suspect]
     Active Substance: FLUPENTIXOL
     Indication: HASHIMOTO^S ENCEPHALOPATHY
  11. CITALOPRAM [Suspect]
     Active Substance: CITALOPRAM HYDROBROMIDE
     Indication: DEPRESSION
     Dosage: UP TO 20 MG/DAY
     Route: 065
     Dates: start: 2016, end: 201609
  12. ARIPIPRAZOLE. [Suspect]
     Active Substance: ARIPIPRAZOLE
     Indication: HASHIMOTO^S ENCEPHALOPATHY
  13. METHYLPREDNISOLONE. [Suspect]
     Active Substance: METHYLPREDNISOLONE
     Indication: AUTOIMMUNE THYROIDITIS
     Dosage: 5 MG X 500 MG FOR FIVE CONSECUTIVE DAYS ()
     Route: 065
     Dates: start: 2016, end: 201609
  14. METHYLPREDNISOLONE. [Suspect]
     Active Substance: METHYLPREDNISOLONE
     Indication: HASHIMOTO^S ENCEPHALOPATHY
  15. FLUPENTIXOL [Suspect]
     Active Substance: FLUPENTIXOL
     Indication: NERVOUS SYSTEM DISORDER
     Dosage: UP TO 1.5 MG/DAY
     Route: 065
     Dates: start: 2016, end: 201609
  16. AMISULPRIDE [Suspect]
     Active Substance: AMISULPRIDE
     Indication: NERVOUS SYSTEM DISORDER
     Dosage: UP TO 400 MG/DAY
     Route: 065
     Dates: start: 2016, end: 201609
  17. RISPERIDONE. [Suspect]
     Active Substance: RISPERIDONE
     Indication: HASHIMOTO^S ENCEPHALOPATHY
  18. LORAZEPAM. [Suspect]
     Active Substance: LORAZEPAM
     Indication: HASHIMOTO^S ENCEPHALOPATHY

REACTIONS (6)
  - Drug ineffective [Unknown]
  - Product use in unapproved indication [Unknown]
  - Apathy [Recovering/Resolving]
  - Treatment failure [Unknown]
  - Cognitive disorder [Recovering/Resolving]
  - Condition aggravated [Recovering/Resolving]

NARRATIVE: CASE EVENT DATE: 2016
